FAERS Safety Report 13547394 (Version 1)
Quarter: 2017Q2

REPORT INFORMATION
  Report Type: Spontaneous
  Country: US (occurrence: US)
  Receive Date: 20170515
  Receipt Date: 20170515
  Transmission Date: 20170830
  Serious: No
  Sender: FDA-Public Use
  Company Number: US-ELI_LILLY_AND_COMPANY-US201704010775

PATIENT
  Sex: Male

DRUGS (1)
  1. HUMATROPE [Suspect]
     Active Substance: SOMATROPIN
     Indication: HYPOTHALAMO-PITUITARY DISORDER
     Dosage: UNK UNK, UNKNOWN
     Route: 058
     Dates: start: 2015

REACTIONS (3)
  - Product quality issue [None]
  - Device malfunction [None]
  - Underdose [Unknown]

NARRATIVE: CASE EVENT DATE: 20170426
